FAERS Safety Report 14361066 (Version 1)
Quarter: 2018Q1

REPORT INFORMATION
  Report Type: Report from Study
  Country: US (occurrence: US)
  Receive Date: 20180107
  Receipt Date: 20180107
  Transmission Date: 20180509
  Serious: Yes (Disabling, Other)
  Sender: FDA-Public Use
  Company Number: US-AMGEN-USASL2018000408

PATIENT
  Age: 66 Year
  Sex: Male

DRUGS (1)
  1. ENBREL [Suspect]
     Active Substance: ETANERCEPT
     Indication: POLYARTHRITIS
     Dosage: 50 MG, QWK
     Route: 065

REACTIONS (6)
  - Drug effect incomplete [Unknown]
  - Mobility decreased [Unknown]
  - Off label use [Unknown]
  - Disability [Unknown]
  - Insomnia [Unknown]
  - Restless legs syndrome [Unknown]
